FAERS Safety Report 9656107 (Version 1)
Quarter: 2013Q4

REPORT INFORMATION
  Report Type: Spontaneous
  Country: GB (occurrence: GB)
  Receive Date: 20131030
  Receipt Date: 20131030
  Transmission Date: 20140711
  Serious: Yes (Disabling)
  Sender: FDA-Public Use
  Company Number: PHFR2013GB006120

PATIENT
  Age: 8 Year
  Sex: Male

DRUGS (2)
  1. METHYLPHENIDATE [Suspect]
     Dosage: UNK UKN, UNK
     Dates: start: 201208, end: 201303
  2. MEDIKINET//METHYLPHENIDATE HYDROCHLORIDE [Suspect]
     Dosage: UNK UKN, UNK
     Dates: start: 201208, end: 201303

REACTIONS (2)
  - Urinary incontinence [Recovered/Resolved]
  - Faecal incontinence [Recovered/Resolved]
